FAERS Safety Report 8966734 (Version 1)
Quarter: 2012Q4

REPORT INFORMATION
  Report Type: 
  Country: US (occurrence: US)
  Receive Date: 20121217
  Receipt Date: 20121217
  Transmission Date: 20130627
  Serious: Yes (Death, Hospitalization)
  Sender: FDA-Public Use
  Company Number: US-PFIZER INC-2012318594

PATIENT
  Age: 89 Year
  Sex: Female
  Weight: 40.82 kg

DRUGS (1)
  1. ZOLOFT [Suspect]
     Indication: DEPRESSION
     Dosage: 100 mg, 1x/day
     Route: 048

REACTIONS (3)
  - Fall [Unknown]
  - Hip fracture [Unknown]
  - Toxicity to various agents [Fatal]
